FAERS Safety Report 24974240 (Version 1)
Quarter: 2025Q1

REPORT INFORMATION
  Report Type: Spontaneous
  Country: BR (occurrence: BR)
  Receive Date: 20250217
  Receipt Date: 20250217
  Transmission Date: 20250409
  Serious: Yes (Hospitalization, Disabling)
  Sender: NOVO NORDISK
  Company Number: BR-NOVOPROD-1366564

PATIENT
  Age: 902 Month
  Sex: Male

DRUGS (2)
  1. NOVOLIN N [Suspect]
     Active Substance: INSULIN HUMAN
     Indication: Diabetes mellitus
  2. NOVOLIN R [Suspect]
     Active Substance: INSULIN HUMAN
     Indication: Diabetes mellitus

REACTIONS (2)
  - Coma [Unknown]
  - Blindness [Unknown]
